FAERS Safety Report 7243334-8 (Version None)
Quarter: 2011Q1

REPORT INFORMATION
  Report Type: 
  Country: None (occurrence: None)
  Receive Date: 20110125
  Receipt Date: 20110114
  Transmission Date: 20110831
  Serious: Yes (Hospitalization, Other)
  Sender: FDA-Public Use
  Company Number: US-ASTRAZENECA-2011SE02914

PATIENT
  Age: 63 Year
  Sex: Male

DRUGS (1)
  1. NEXIUM [Suspect]
     Route: 048

REACTIONS (5)
  - RENAL FAILURE ACUTE [None]
  - CARDIAC FAILURE [None]
  - HYPERTENSION [None]
  - DIABETES MELLITUS [None]
  - COUGH [None]
